FAERS Safety Report 11075231 (Version 1)
Quarter: 2015Q2

REPORT INFORMATION
  Report Type: Spontaneous
  Country: US (occurrence: None)
  Receive Date: 20150428
  Receipt Date: 20150428
  Transmission Date: 20150821
  Serious: No
  Sender: FDA-Public Use
  Company Number: None

PATIENT
  Age: 36 Year
  Sex: Female
  Weight: 87.54 kg

DRUGS (5)
  1. TROKENDI [Concomitant]
     Active Substance: TOPIRAMATE
  2. TROKENDI XR [Suspect]
     Active Substance: TOPIRAMATE
     Indication: MIGRAINE
     Dosage: 1 PILL ONCE DAILY TAKEN BY MOUTH
     Route: 048
     Dates: start: 20150424
  3. ADVIL [Concomitant]
     Active Substance: IBUPROFEN
  4. NATURE^S BOUNTY - HAIR, SKIN AND NAIL VITAMINS [Concomitant]
  5. PAXIL [Concomitant]
     Active Substance: PAROXETINE HYDROCHLORIDE

REACTIONS (2)
  - Anorectal disorder [None]
  - Feeling abnormal [None]

NARRATIVE: CASE EVENT DATE: 20150424
